FAERS Safety Report 9879774 (Version 2)
Quarter: 2014Q2

REPORT INFORMATION
  Report Type: Report from Study
  Country: US (occurrence: US)
  Receive Date: 20140206
  Receipt Date: 20140502
  Transmission Date: 20141212
  Serious: Yes (Other)
  Sender: FDA-Public Use
  Company Number: PHEH2014US002561

PATIENT
  Sex: Female

DRUGS (4)
  1. DIOVAN [Suspect]
     Dosage: UNK UKN, UNK
  2. DIOVAN HCT [Suspect]
     Dosage: UNK UKN, UNK
  3. DIOVAN HCT [Suspect]
     Dosage: UNK UKN, UNK
  4. HYDROCHLOROTHIAZIDE,VALSARTAN [Suspect]
     Dosage: UNK UKN, UNK

REACTIONS (1)
  - Cerebrovascular accident [Unknown]
